FAERS Safety Report 12144157 (Version 1)
Quarter: 2016Q1

REPORT INFORMATION
  Report Type: Spontaneous
  Country: US (occurrence: None)
  Receive Date: 20160303
  Receipt Date: 20160303
  Transmission Date: 20160526
  Serious: No
  Sender: FDA-Public Use
  Company Number: None

PATIENT
  Age: 6 Year
  Sex: Male
  Weight: 21.32 kg

DRUGS (2)
  1. AMOXICILLIN. [Concomitant]
     Active Substance: AMOXICILLIN
  2. TAMIFLU [Suspect]
     Active Substance: OSELTAMIVIR PHOSPHATE
     Indication: INFLUENZA
     Dosage: 7.5 ML, TWICE DAILY, TAKEN BY MOUTH
     Dates: start: 20160229, end: 20160301

REACTIONS (3)
  - Tongue pruritus [None]
  - Swollen tongue [None]
  - Epistaxis [None]

NARRATIVE: CASE EVENT DATE: 20160301
